FAERS Safety Report 7347104 (Version 2)
Quarter: 2013Q1

REPORT INFORMATION
  Report Type: Report from Study
  Country: US (occurrence: US)
  Receive Date: 20100407
  Receipt Date: 20130128
  Transmission Date: 20140127
  Serious: Yes (Death)
  Sender: FDA-Public Use
  Company Number: PHHO2010US02197

PATIENT
  Age: 62 Year
  Sex: Male

DRUGS (2)
  1. ALISKIREN [Suspect]
     Indication: CARDIAC FAILURE
     Dosage: UNK
     Route: 048
     Dates: start: 20090605
  2. COMPARATOR ENALAPRIL [Suspect]
     Indication: CARDIAC DISORDER
     Dosage: UNK
     Route: 048
     Dates: start: 20090429

REACTIONS (5)
  - Pulmonary oedema [Fatal]
  - Dyspnoea [Fatal]
  - Respiratory failure [Fatal]
  - Respiratory arrest [Fatal]
  - Disease progression [Fatal]
